FAERS Safety Report 5055918-6 (Version None)
Quarter: 2006Q3

REPORT INFORMATION
  Report Type: 
  Country: None (occurrence: None)
  Receive Date: 20060717
  Receipt Date: 20060717
  Transmission Date: 20061208
  Serious: Yes (Life-Threatening, Hospitalization)
  Sender: FDA-Public Use
  Company Number: None

PATIENT
  Sex: Female
  Weight: 54.4316 kg

DRUGS (1)
  1. FLUOXETINE [Suspect]
     Indication: DEPRESSION
     Dosage: 20MG CAPSULE PER EACH TIME   1 PER DAY   PO
     Route: 048
     Dates: start: 20050315, end: 20060630

REACTIONS (27)
  - AFFECT LABILITY [None]
  - AGITATION [None]
  - AMNESIA [None]
  - CHEST PAIN [None]
  - CHILLS [None]
  - COMA [None]
  - CONFUSIONAL STATE [None]
  - DISTURBANCE IN ATTENTION [None]
  - DRUG DEPENDENCE [None]
  - DRUG WITHDRAWAL SYNDROME [None]
  - DYSPNOEA [None]
  - EUPHORIC MOOD [None]
  - HALLUCINATIONS, MIXED [None]
  - HYPERHIDROSIS [None]
  - HYPOREFLEXIA [None]
  - HYPOTHERMIA [None]
  - INSOMNIA [None]
  - NAUSEA [None]
  - PANIC ATTACK [None]
  - PARANOIA [None]
  - RASH [None]
  - STUPOR [None]
  - SUICIDAL IDEATION [None]
  - THINKING ABNORMAL [None]
  - VIRAL INFECTION [None]
  - VOMITING [None]
  - WEIGHT DECREASED [None]
